FAERS Safety Report 4635214-9 (Version None)
Quarter: 2005Q2

REPORT INFORMATION
  Report Type: 
  Country: None (occurrence: None)
  Receive Date: 20050411
  Receipt Date: 20050328
  Transmission Date: 20051028
  Serious: Yes (Other)
  Sender: FDA-Public Use
  Company Number: 2005050997

PATIENT
  Sex: Female
  Weight: 81.6475 kg

DRUGS (10)
  1. DETROL LA [Suspect]
     Indication: ILL-DEFINED DISORDER
  2. CONJUGATED ESTROGENS [Concomitant]
  3. ASPIRIN [Concomitant]
  4. DIOVAN HCT [Concomitant]
  5. LEVOTHYROXINE SODIUM [Concomitant]
  6. GLUCOSAMINE SULFATE (GLUCOSAMINE SULFATE) [Concomitant]
  7. GINKGO BILOBA (GINKGO BILOBA) [Concomitant]
  8. CENTRUM SILVER (ASCORBIC ACID, CALCIUM, MINERALS NOS, RETINOL, TOCOPHE [Concomitant]
  9. LEKOVIT CA (CALCIUM CARBONATE, COLECALCIFEROL) [Concomitant]
  10. TOCOPHEROL (TOCOPHEROL) [Concomitant]

REACTIONS (2)
  - DRUG INEFFECTIVE [None]
  - GASTRIC POLYPS [None]
